FAERS Safety Report 16597224 (Version 1)
Quarter: 2019Q3

REPORT INFORMATION
  Report Type: Spontaneous
  Country: US (occurrence: US)
  Receive Date: 20190606
  Receipt Date: 20190606
  Transmission Date: 20191004
  Serious: No
  Sender: FDA-Public Use
  Company Number: None

PATIENT
  Age: 55 Year
  Sex: Male

DRUGS (1)
  1. MYCOPHENOLIC TAB 180MG DR [Suspect]
     Active Substance: MYCOPHENOLIC ACID
     Indication: HYPERPARATHYROIDISM
     Route: 048
     Dates: start: 201804

REACTIONS (2)
  - Off label use [None]
  - Memory impairment [None]

NARRATIVE: CASE EVENT DATE: 20190606
